FAERS Safety Report 13078997 (Version 2)
Quarter: 2017Q1

REPORT INFORMATION
  Report Type: Report from Study
  Country: US (occurrence: US)
  Receive Date: 20170102
  Receipt Date: 20170109
  Transmission Date: 20170428
  Serious: Yes (Other)
  Sender: FDA-Public Use
  Company Number: PHEH2016US034085

PATIENT
  Sex: Female
  Weight: 46.71 kg

DRUGS (1)
  1. GILENYA [Suspect]
     Active Substance: FINGOLIMOD HYDROCHLORIDE
     Indication: MULTIPLE SCLEROSIS
     Dosage: 0.5 MG, QD
     Route: 048
     Dates: start: 20110601

REACTIONS (4)
  - Malaise [Unknown]
  - Frustration tolerance decreased [Unknown]
  - Sleep disorder [Unknown]
  - Seizure [Unknown]
